FAERS Safety Report 11245208 (Version 1)
Quarter: 2015Q3

REPORT INFORMATION
  Report Type: Spontaneous
  Country: US (occurrence: US)
  Receive Date: 20150707
  Receipt Date: 20150707
  Transmission Date: 20151125
  Serious: Yes (Other)
  Sender: FDA-Public Use
  Company Number: US-COREPHARMA LLC-2015COR00138

PATIENT
  Age: 39 Year
  Sex: Female

DRUGS (1)
  1. DEXTROAMPHET SACCHARAT, AMPHET ASPARTATE, DEXTROAMPHET SULFATE AND AMPHET SULFAT [Suspect]
     Active Substance: AMPHETAMINE ASPARTATE\AMPHETAMINE SULFATE\DEXTROAMPHETAMINE SACCHARATE\DEXTROAMPHETAMINE SULFATE
     Indication: PRODUCT USED FOR UNKNOWN INDICATION
     Dosage: 45 MG, 1X/DAY
     Route: 048
     Dates: start: 201506, end: 201506

REACTIONS (13)
  - Suspiciousness [Unknown]
  - Lethargy [Unknown]
  - Agitation [Unknown]
  - Disturbance in attention [Unknown]
  - Anxiety [Unknown]
  - Drug effect increased [Unknown]
  - Insomnia [Unknown]
  - Salivary hypersecretion [Unknown]
  - Drug hypersensitivity [Unknown]
  - Vision blurred [Unknown]
  - Drug effect decreased [Unknown]
  - Product substitution issue [Unknown]
  - Confusional state [Unknown]

NARRATIVE: CASE EVENT DATE: 201506
